FAERS Safety Report 19052006 (Version 2)
Quarter: 2021Q2

REPORT INFORMATION
  Report Type: Report from Study
  Country: BR (occurrence: BR)
  Receive Date: 20210324
  Receipt Date: 20210401
  Transmission Date: 20210717
  Serious: Yes (Other)
  Sender: FDA-Public Use
  Company Number: BR-TAKEDA-2021TUS017982

PATIENT

DRUGS (1)
  1. IDURSULFASE [Suspect]
     Active Substance: IDURSULFASE
     Indication: PRODUCT USED FOR UNKNOWN INDICATION
     Route: 065

REACTIONS (10)
  - Scoliosis [Unknown]
  - Gait disturbance [Unknown]
  - Epilepsy [Unknown]
  - Carpal tunnel syndrome [Unknown]
  - Pain in extremity [Unknown]
  - Tarsal tunnel syndrome [Unknown]
  - Arthralgia [Unknown]
  - Spinal cord compression [Unknown]
  - Bone disorder [Unknown]
  - Unevaluable event [Unknown]
